FAERS Safety Report 5035313-6 (Version None)
Quarter: 2006Q2

REPORT INFORMATION
  Report Type: 
  Country: None (occurrence: None)
  Receive Date: 20060519
  Receipt Date: 20060227
  Transmission Date: 20061013
  Serious: No
  Sender: FDA-Public Use
  Company Number: TPA2006A00351

PATIENT
  Age: 69 Year
  Sex: Male
  Weight: 72.5755 kg

DRUGS (1)
  1. ROZEREM [Suspect]
     Indication: INSOMNIA
     Dosage: 8 MG, QHS, PER ORAL
     Route: 048
     Dates: start: 20060206, end: 20060211

REACTIONS (3)
  - HYPOAESTHESIA [None]
  - MUSCULOSKELETAL STIFFNESS [None]
  - PERIPHERAL COLDNESS [None]
